FAERS Safety Report 8237753-0 (Version None)
Quarter: 2012Q1

REPORT INFORMATION
  Report Type: 
  Country: None (occurrence: None)
  Receive Date: 20120327
  Receipt Date: 20120321
  Transmission Date: 20120608
  Serious: Yes (Hospitalization)
  Sender: FDA-Public Use
  Company Number: IT-AMGEN-ITACT2012013878

PATIENT
  Age: 66 Year
  Sex: Male
  Weight: 67 kg

DRUGS (13)
  1. PANITUMUMAB [Suspect]
     Indication: COLORECTAL CANCER METASTATIC
     Dosage: 402 MG, UNK
     Dates: start: 20110803
  2. LEUCOVORIN CALCIUM [Suspect]
     Indication: COLORECTAL CANCER
     Dosage: 350 MG, UNK
  3. IRINOTECAN HCL [Suspect]
     Indication: COLORECTAL CANCER
     Dosage: 260 MG, UNK
     Dates: end: 20110820
  4. CIPROFLOXACIN [Concomitant]
     Dosage: 750 MG, BID
     Route: 048
     Dates: start: 20110828
  5. ASPIRIN [Concomitant]
     Dosage: 75 MG, UNK
     Route: 048
     Dates: start: 19920101
  6. TENORMIN [Concomitant]
     Indication: HYPERTENSION
     Dosage: 100 MG, QD
     Route: 048
  7. AMOXICILLIN AND CLAVULANATE POTASSIUM [Concomitant]
     Dosage: 1 G, BID
     Route: 048
     Dates: start: 20110828
  8. FLUOROURACIL [Suspect]
     Indication: COLORECTAL CANCER
     Dosage: 4150 MG, UNK
  9. OXALIPLATIN [Suspect]
     Indication: COLORECTAL CANCER
  10. SEACOR [Concomitant]
     Indication: HYPERCHOLESTEROLAEMIA
     Dosage: 3000 MG, UNK
  11. LANSOPRAZOLE [Concomitant]
     Dosage: 15 MG, UNK
     Route: 048
  12. LOPERAMIDE [Concomitant]
     Dosage: UNK
     Route: 048
     Dates: start: 20110822
  13. CRESTOR [Concomitant]
     Indication: HYPERCHOLESTEROLAEMIA
     Dosage: 20 MG, QD
     Route: 048

REACTIONS (2)
  - FEBRILE NEUTROPENIA [None]
  - DIARRHOEA [None]
